FAERS Safety Report 22304771 (Version 1)
Quarter: 2023Q2

REPORT INFORMATION
  Report Type: Spontaneous
  Country: US (occurrence: None)
  Receive Date: 20230509
  Receipt Date: 20230509
  Transmission Date: 20230721
  Serious: No
  Sender: FDA-Public Use
  Company Number: None

PATIENT
  Age: 11 Month
  Sex: Female

DRUGS (1)
  1. OFLOXACIN [Suspect]
     Active Substance: OFLOXACIN
     Indication: Conjunctivitis
     Dates: start: 20230317, end: 20230317

REACTIONS (4)
  - Periorbital swelling [None]
  - Ocular hyperaemia [None]
  - Screaming [None]
  - Crying [None]

NARRATIVE: CASE EVENT DATE: 20230317
